FAERS Safety Report 6876248-3 (Version None)
Quarter: 2010Q3

REPORT INFORMATION
  Report Type: 
  Country: None (occurrence: None)
  Receive Date: 20100727
  Receipt Date: 20100722
  Transmission Date: 20110219
  Serious: Yes (Death)
  Sender: FDA-Public Use
  Company Number: A0872185A

PATIENT
  Age: 83 Year
  Sex: Male

DRUGS (3)
  1. PROMACTA [Suspect]
     Route: 048
  2. DANAZOL [Concomitant]
     Dates: start: 20100210
  3. REVLIMID [Concomitant]
     Dates: start: 20100208

REACTIONS (1)
  - DEATH [None]
